FAERS Safety Report 14892127 (Version 2)
Quarter: 2020Q2

REPORT INFORMATION
  Report Type: Report from Study
  Country: JP (occurrence: JP)
  Receive Date: 20180514
  Receipt Date: 20200622
  Transmission Date: 20200713
  Serious: Yes (Other)
  Sender: FDA-Public Use
  Company Number: JP-BAYER-2018-091820

PATIENT
  Age: 92 Year
  Sex: Female

DRUGS (10)
  1. WARFARIN POTASSIUM [Concomitant]
     Active Substance: WARFARIN POTASSIUM
     Indication: PULMONARY HYPERTENSION
     Dosage: DAILY DOSE 2.5 MG
     Route: 048
     Dates: start: 20180407, end: 20190118
  2. NAUZELIN [Suspect]
     Active Substance: DOMPERIDONE
     Indication: NAUSEA
     Dosage: UNK UNK, PRN
  3. BEPRICOR [Concomitant]
     Active Substance: BEPRIDIL
     Dosage: DAILY DOSE 100 MG
     Route: 048
     Dates: start: 20180426, end: 20190115
  4. ADEMPAS [Suspect]
     Active Substance: RIOCIGUAT
     Indication: PULMONARY HYPERTENSION
     Dosage: DAILY DOSE 4.5 MG
     Route: 048
     Dates: start: 20180514, end: 20180624
  5. PRIMPERAN [Suspect]
     Active Substance: METOCLOPRAMIDE HYDROCHLORIDE
     Indication: NAUSEA
     Dosage: UNK
     Dates: start: 201804
  6. BLOPRESS [Suspect]
     Active Substance: CANDESARTAN CILEXETIL
  7. ADEMPAS [Suspect]
     Active Substance: RIOCIGUAT
     Indication: PULMONARY HYPERTENSION
     Dosage: DAILY DOSE 7.5. MG
     Route: 048
     Dates: start: 20180724
  8. ADEMPAS [Suspect]
     Active Substance: RIOCIGUAT
     Indication: PULMONARY HYPERTENSION
     Dosage: DAILY DOSE 3 MG
     Route: 048
     Dates: start: 20180416, end: 20180513
  9. ADEMPAS [Suspect]
     Active Substance: RIOCIGUAT
     Indication: PULMONARY HYPERTENSION
     Dosage: DAILY DOSE 6MG
     Route: 048
     Dates: start: 20180625, end: 20180723
  10. OXYGEN. [Concomitant]
     Active Substance: OXYGEN
     Indication: PULMONARY HYPERTENSION
     Dosage: UNK
     Dates: start: 20180316

REACTIONS (5)
  - Atrial fibrillation [Recovered/Resolved]
  - Gastrooesophageal reflux disease [Recovered/Resolved]
  - Nausea [Recovering/Resolving]
  - Dyspepsia [Recovered/Resolved]
  - Hypotension [Recovered/Resolved]

NARRATIVE: CASE EVENT DATE: 20180416
